FAERS Safety Report 5148379-X (Version None)
Quarter: 2006Q4

REPORT INFORMATION
  Report Type: 
  Country: None (occurrence: None)
  Receive Date: 20061106
  Receipt Date: 20061023
  Transmission Date: 20070319
  Serious: Yes (Hospitalization)
  Sender: FDA-Public Use
  Company Number: 2006129962

PATIENT
  Age: 67 Year
  Sex: Male
  Weight: 55.3 kg

DRUGS (10)
  1. SUTENT [Suspect]
     Indication: METASTATIC RENAL CELL CARCINOMA
     Dosage: SEE IMAGE
     Route: 048
     Dates: start: 20060720, end: 20060816
  2. SUTENT [Suspect]
     Indication: METASTATIC RENAL CELL CARCINOMA
     Dosage: SEE IMAGE
     Route: 048
     Dates: start: 20060831
  3. LEVOTHYROXINE SODIUM [Concomitant]
  4. MESALAZINE [Concomitant]
  5. SIMVASTATIN [Concomitant]
  6. RAMIPRIL [Concomitant]
  7. BISOPROLOL FUMARATE [Concomitant]
  8. TAMSULOSIN HCL [Concomitant]
  9. SENNA [Concomitant]
  10. DOMPERIDONE [Concomitant]

REACTIONS (4)
  - ACCIDENT [None]
  - CHEST PAIN [None]
  - MYOCARDIAL ISCHAEMIA [None]
  - THERAPY CESSATION [None]
